FAERS Safety Report 4837634-6 (Version None)
Quarter: 2005Q4

REPORT INFORMATION
  Report Type: 
  Country: None (occurrence: None)
  Receive Date: 20051024
  Receipt Date: 20050922
  Transmission Date: 20060501
  Serious: No
  Sender: FDA-Public Use
  Company Number: 216718

PATIENT
  Sex: Female

DRUGS (1)
  1. XOLAIR [Suspect]

REACTIONS (2)
  - PAIN IN EXTREMITY [None]
  - RESPIRATORY DISORDER [None]
